FAERS Safety Report 15848773 (Version 1)
Quarter: 2019Q1

REPORT INFORMATION
  Report Type: Spontaneous
  Country: US (occurrence: US)
  Receive Date: 20190121
  Receipt Date: 20190121
  Transmission Date: 20190417
  Serious: Yes (Hospitalization, Other)
  Sender: FDA-Public Use
  Company Number: US-IROKO PHARMACEUTICALS LLC-US-I09001-19-00005

PATIENT
  Age: 65 Year
  Sex: Male

DRUGS (1)
  1. DICLOFENAC AMBIGUOUS [Suspect]
     Active Substance: DICLOFENAC
     Indication: PRODUCT USED FOR UNKNOWN INDICATION
     Route: 065

REACTIONS (2)
  - Ischaemic gastritis [Recovering/Resolving]
  - Gastric pneumatosis [Recovering/Resolving]
